FAERS Safety Report 7876436-3 (Version None)
Quarter: 2011Q4

REPORT INFORMATION
  Report Type: 
  Country: None (occurrence: None)
  Receive Date: 20111031
  Receipt Date: 20111026
  Transmission Date: 20120403
  Serious: Yes (Hospitalization)
  Sender: FDA-Public Use
  Company Number: PHHY2011FR94978

PATIENT
  Sex: Male

DRUGS (5)
  1. DIHYDROERGOTAMINE MESYLATE [Concomitant]
  2. VOLTAREN [Suspect]
     Dosage: 1 DF, QD, FOR 8 DAYS (8 TABLETS)
     Route: 048
  3. METFORMIN HCL [Concomitant]
  4. GLIMEPIRIDE [Concomitant]
  5. ALFUZOSIN HCL [Concomitant]

REACTIONS (3)
  - VARICES OESOPHAGEAL [None]
  - GASTROINTESTINAL HAEMORRHAGE [None]
  - GENERAL PHYSICAL HEALTH DETERIORATION [None]
